FAERS Safety Report 12323389 (Version 4)
Quarter: 2016Q4

REPORT INFORMATION
  Report Type: Report from Study
  Country: GB (occurrence: GB)
  Receive Date: 20160502
  Receipt Date: 20161011
  Transmission Date: 20170207
  Serious: Yes (Death, Hospitalization)
  Sender: FDA-Public Use
  Company Number: GB-TAKEDA-2016MPI003399

PATIENT
  Age: 79 Year
  Sex: Male
  Weight: 83.6 kg

DRUGS (30)
  1. LAXIDO ORANGE [Concomitant]
     Indication: CONSTIPATION
     Dosage: UNK, BID
     Route: 048
     Dates: start: 20110922
  2. OMEPRAZOLE. [Concomitant]
     Active Substance: OMEPRAZOLE
     Indication: ANTACID THERAPY
     Dosage: 40 MG, QD
     Route: 048
     Dates: start: 20061123
  3. ASPIRIN                            /00002701/ [Concomitant]
     Active Substance: ASPIRIN
     Indication: MYOCARDIAL ISCHAEMIA
     Dosage: 75 MG, QD
     Route: 048
     Dates: start: 20050826
  4. ADCAL D3 [Concomitant]
     Active Substance: CALCIUM CARBONATE\CHOLECALCIFEROL
     Indication: HYPOCALCAEMIA
     Dosage: UNK UNK, BID
     Route: 048
     Dates: start: 20160311, end: 20160313
  5. VELCADE [Suspect]
     Active Substance: BORTEZOMIB
     Indication: PLASMA CELL MYELOMA
     Dosage: 2.7 MG, UNK
     Route: 058
     Dates: start: 20160329, end: 20160409
  6. CELIPROLOL [Concomitant]
     Active Substance: CELIPROLOL
     Indication: MYOCARDIAL ISCHAEMIA
     Dosage: 400 MG, QD
     Route: 048
     Dates: start: 19970619
  7. PAMIDRONATE [Concomitant]
     Active Substance: PAMIDRONATE DISODIUM
     Indication: HYPERCALCAEMIA
     Dosage: 30 MG, UNK
     Route: 042
     Dates: start: 20160304, end: 20160304
  8. ENOXAPARIN [Concomitant]
     Active Substance: ENOXAPARIN
     Indication: THROMBOSIS PROPHYLAXIS
     Dosage: 40 MG, QD
     Route: 058
     Dates: start: 20160302
  9. FINASTERIDE. [Concomitant]
     Active Substance: FINASTERIDE
     Indication: BENIGN PROSTATIC HYPERPLASIA
     Dosage: 5 MG, QD
     Route: 048
     Dates: start: 1999
  10. TAMSULOSIN [Concomitant]
     Active Substance: TAMSULOSIN
     Indication: BENIGN PROSTATIC HYPERPLASIA
     Dosage: 400 MG, QD
     Route: 048
     Dates: start: 19991020
  11. ALLOPURINOL. [Concomitant]
     Active Substance: ALLOPURINOL
     Indication: PROPHYLAXIS
     Dosage: 100 MG, QD
     Route: 048
     Dates: start: 20160307
  12. MORPHINE SULPHATE [Concomitant]
     Active Substance: MORPHINE SULFATE
     Indication: ANALGESIC THERAPY
     Dosage: 10 MG, BID
     Route: 048
     Dates: start: 20160310
  13. BENDAMUSTINE [Suspect]
     Active Substance: BENDAMUSTINE
     Indication: PLASMA CELL MYELOMA
     Dosage: 60 MG, UNK
     Route: 042
     Dates: start: 20160329
  14. BETAHISTINE [Concomitant]
     Active Substance: BETAHISTINE
     Indication: VERTIGO
     Dosage: 16 MG, BID
     Route: 048
     Dates: start: 19960817
  15. NICORANDIL [Concomitant]
     Active Substance: NICORANDIL
     Indication: HYPERTENSION
     Dosage: 10 MG, BID
     Route: 048
     Dates: start: 20060706
  16. ACICLOVIR [Concomitant]
     Active Substance: ACYCLOVIR
     Indication: ANTIVIRAL PROPHYLAXIS
     Dosage: 200 MG, BID
     Route: 048
     Dates: start: 20160307
  17. DEXAMETHASONE. [Concomitant]
     Active Substance: DEXAMETHASONE
     Indication: HYPERCALCAEMIA
     Dosage: 40 MG, UNK
     Route: 042
     Dates: start: 20160303, end: 20160303
  18. PARACETAMOL [Concomitant]
     Active Substance: ACETAMINOPHEN
     Indication: ANALGESIC THERAPY
     Dosage: 1 G, QD
     Route: 048
     Dates: start: 19991105
  19. DEXAMETHASONE. [Suspect]
     Active Substance: DEXAMETHASONE
     Indication: PLASMA CELL MYELOMA
     Dosage: 20 MG, UNK
     Route: 048
     Dates: start: 20160329, end: 20160409
  20. NIFEDIPINE. [Concomitant]
     Active Substance: NIFEDIPINE
     Indication: HYPERTENSION
     Dosage: 40 MG, BID
     Route: 048
     Dates: start: 19980327
  21. SOLIFENACIN [Concomitant]
     Active Substance: SOLIFENACIN
     Indication: HYPERTONIC BLADDER
     Dosage: 5 MG, QD
     Route: 048
     Dates: start: 1999
  22. SENNA                              /00142201/ [Concomitant]
     Active Substance: SENNA LEAF
     Indication: CONSTIPATION
     Dosage: 15 MG, QD
     Route: 048
     Dates: start: 20160312
  23. VELCADE [Suspect]
     Active Substance: BORTEZOMIB
     Dosage: UNK
     Route: 058
     Dates: start: 20160419
  24. CHEMYDUR [Concomitant]
     Indication: MYOCARDIAL ISCHAEMIA
     Dosage: 60 MG, QD
     Route: 048
     Dates: start: 2009
  25. COTRIMOXAZOLE [Concomitant]
     Active Substance: SULFAMETHOXAZOLE\TRIMETHOPRIM
     Indication: ANTIFUNGAL PROPHYLAXIS
     Dosage: 480 MG, BID
     Route: 048
     Dates: start: 20160307
  26. DEXAMETHASONE. [Suspect]
     Active Substance: DEXAMETHASONE
     Dosage: UNK
     Route: 048
     Dates: start: 20160419
  27. ATORVASTATIN [Concomitant]
     Active Substance: ATORVASTATIN
     Indication: HYPERCHOLESTEROLAEMIA
     Dosage: 20 MG, QD
     Route: 048
     Dates: start: 20130701
  28. QUININE BISULFATE [Concomitant]
     Active Substance: QUININE BISULFATE
     Indication: MUSCLE SPASMS
     Dosage: 300 MG, QD
     Route: 048
     Dates: start: 20080725
  29. OXYMORPHONE [Concomitant]
     Active Substance: OXYMORPHONE
     Indication: ANALGESIC THERAPY
     Dosage: UNK
     Route: 048
     Dates: start: 20160310
  30. PAMIDRONATE [Concomitant]
     Active Substance: PAMIDRONATE DISODIUM
     Dosage: 30 MG, UNK
     Route: 042
     Dates: start: 20160305, end: 20160305

REACTIONS (2)
  - Infestation [Recovered/Resolved with Sequelae]
  - Infection [Recovered/Resolved with Sequelae]

NARRATIVE: CASE EVENT DATE: 20160407
